FAERS Safety Report 16902540 (Version 1)
Quarter: 2019Q4

REPORT INFORMATION
  Report Type: Spontaneous
  Country: MX (occurrence: MX)
  Receive Date: 20191010
  Receipt Date: 20191010
  Transmission Date: 20200122
  Serious: Yes (Other)
  Sender: FDA-Public Use
  Company Number: MX-PFIZER INC-2019436370

PATIENT
  Age: 95 Year
  Sex: Female

DRUGS (1)
  1. HALCION [Suspect]
     Active Substance: TRIAZOLAM
     Indication: DEPRESSION
     Dosage: 0.25 MG, 1X/DAY
     Dates: start: 1989

REACTIONS (4)
  - Withdrawal syndrome [Unknown]
  - Sleep disorder [Unknown]
  - Drug dependence [Unknown]
  - Suicidal ideation [Unknown]
